FAERS Safety Report 11154713 (Version 1)
Quarter: 2015Q2

REPORT INFORMATION
  Report Type: Spontaneous
  Country: US (occurrence: None)
  Receive Date: 20150601
  Receipt Date: 20150601
  Transmission Date: 20150821
  Serious: Yes (Other)
  Sender: FDA-Public Use
  Company Number: None

PATIENT
  Sex: Male
  Weight: 81.8 kg

DRUGS (2)
  1. VITAMIN B (UNSPECIFIED) [Concomitant]
  2. AXONA [Suspect]
     Active Substance: TRICAPRYLIN
     Indication: DEMENTIA ALZHEIMER^S TYPE
     Dosage: UNK, 1X/DAY, ORAL
     Route: 048
     Dates: start: 201501, end: 20150429

REACTIONS (3)
  - Agitation [None]
  - Dementia Alzheimer^s type [None]
  - Confusional state [None]

NARRATIVE: CASE EVENT DATE: 2015
